FAERS Safety Report 10697439 (Version 2)
Quarter: 2015Q1

REPORT INFORMATION
  Report Type: Spontaneous
  Country: FR (occurrence: FR)
  Receive Date: 20150108
  Receipt Date: 20150127
  Transmission Date: 20150721
  Serious: Yes (Life-Threatening)
  Sender: FDA-Public Use
  Company Number: FR-TEVA-532128ISR

PATIENT
  Sex: Male

DRUGS (3)
  1. NATULAN [Concomitant]
     Active Substance: PROCARBAZINE HYDROCHLORIDE
     Indication: CENTRAL NERVOUS SYSTEM LYMPHOMA
     Dates: start: 20141206
  2. METHOTREXATE TEVA 10 POUR CENT (5 G/ 50 ML) [Suspect]
     Active Substance: METHOTREXATE
     Indication: CENTRAL NERVOUS SYSTEM LYMPHOMA
     Route: 042
     Dates: start: 20141206, end: 20141208
  3. VINCRISTINE [Concomitant]
     Active Substance: VINCRISTINE
     Indication: CENTRAL NERVOUS SYSTEM LYMPHOMA
     Dates: start: 20141206

REACTIONS (5)
  - Bone marrow failure [Recovering/Resolving]
  - Overdose [Recovered/Resolved]
  - Dermatitis bullous [Recovering/Resolving]
  - Acute kidney injury [Recovering/Resolving]
  - Hepatocellular injury [Recovered/Resolved]
